FAERS Safety Report 4285007-X (Version None)
Quarter: 2004Q1

REPORT INFORMATION
  Report Type: 
  Country: None (occurrence: None)
  Receive Date: 20040204
  Receipt Date: 20031203
  Transmission Date: 20041129
  Serious: Yes (Death, Life-Threatening, Hospitalization, Disabling)
  Sender: FDA-Public Use
  Company Number: WAES 0312USA00790

PATIENT
  Sex: Male

DRUGS (1)
  1. HYZAAR [Suspect]
     Indication: CARDIAC FAILURE CONGESTIVE
     Route: 048
     Dates: end: 20031101

REACTIONS (5)
  - CARDIAC FAILURE CONGESTIVE [None]
  - CIRCULATORY COLLAPSE [None]
  - HEPATIC FAILURE [None]
  - JAUNDICE CHOLESTATIC [None]
  - RENAL FAILURE [None]
